FAERS Safety Report 9978312 (Version 2)
Quarter: 2014Q1

REPORT INFORMATION
  Report Type: Spontaneous
  Country: US (occurrence: US)
  Receive Date: 20140306
  Receipt Date: 20140306
  Transmission Date: 20141002
  Serious: Yes (Other)
  Sender: FDA-Public Use
  Company Number: US-GE HEALTHCARE MEDICAL DIAGNOSTICS-OSCN-PR-0902S-0080

PATIENT
  Age: 23 Year
  Sex: Female

DRUGS (3)
  1. OMNISCAN [Suspect]
     Indication: PRODUCT USED FOR UNKNOWN INDICATION
     Route: 042
     Dates: start: 20040415, end: 20040415
  2. OMNISCAN [Suspect]
     Route: 042
     Dates: start: 20060502, end: 20060502
  3. MULTIHANCE [Suspect]
     Indication: PRODUCT USED FOR UNKNOWN INDICATION
     Route: 042
     Dates: start: 20070718, end: 20070718

REACTIONS (1)
  - Nephrogenic systemic fibrosis [Not Recovered/Not Resolved]
